FAERS Safety Report 5252356-8 (Version None)
Quarter: 2007Q1

REPORT INFORMATION
  Report Type: 
  Country: None (occurrence: None)
  Receive Date: 20070301
  Receipt Date: 20060724
  Transmission Date: 20070707
  Serious: Yes (Hospitalization)
  Sender: FDA-Public Use
  Company Number: US-BRISTOL-MYERS SQUIBB COMPANY-13450663

PATIENT
  Age: 36 Year
  Sex: Female
  Weight: 62 kg

DRUGS (7)
  1. TAXOL [Suspect]
     Indication: BREAST CANCER
  2. PHENERGAN HCL [Concomitant]
  3. VICODIN [Concomitant]
  4. COMPAZINE [Concomitant]
  5. DECADRON [Concomitant]
  6. EPOGEN [Concomitant]
  7. IRON SUCROSE [Concomitant]

REACTIONS (1)
  - MENINGITIS [None]
